FAERS Safety Report 18402810 (Version 1)
Quarter: 2020Q4

REPORT INFORMATION
  Report Type: Spontaneous
  Country: NL (occurrence: NL)
  Receive Date: 20201020
  Receipt Date: 20201020
  Transmission Date: 20210114
  Serious: Yes (Hospitalization)
  Sender: FDA-Public Use
  Company Number: NL-AUROBINDO-AUR-APL-2019-083252

PATIENT
  Age: 62 Year
  Sex: Female

DRUGS (6)
  1. VORICONAZOLE. [Interacting]
     Active Substance: VORICONAZOLE
     Dosage: 200 MILLIGRAM, TWO TIMES A DAY (MAINTENANCE DOSE)
     Route: 048
  2. VORICONAZOLE. [Interacting]
     Active Substance: VORICONAZOLE
     Dosage: 510 MILLIGRAM (LOADING DOSE OF 6 MG/KG)
     Route: 040
  3. VORICONAZOLE. [Interacting]
     Active Substance: VORICONAZOLE
     Dosage: 5 MILLIGRAM/KILOGRAM, TWO TIMES A DAY (MAINTENANCE DOSE (425MG)
     Route: 042
  4. CARBAMAZAPINE [Interacting]
     Active Substance: CARBAMAZEPINE
     Indication: BIPOLAR DISORDER
     Dosage: 200 MILLIGRAM, TWO TIMES A DAY
     Route: 048
     Dates: start: 2005
  5. AMBISOME [Concomitant]
     Active Substance: AMPHOTERICIN B
     Indication: FUNGAL INFECTION
     Dosage: UNK
     Route: 065
  6. VORICONAZOLE. [Suspect]
     Active Substance: VORICONAZOLE
     Indication: FUNGAL INFECTION
     Dosage: 400 MILLIGRAM, TWO TIMES A DAY (LOADING DOSE FOR 1 DAY
     Route: 048

REACTIONS (2)
  - Drug interaction [Recovering/Resolving]
  - Drug level below therapeutic [Recovering/Resolving]
